FAERS Safety Report 8449129-1 (Version None)
Quarter: 2012Q2

REPORT INFORMATION
  Report Type: 
  Country: None (occurrence: None)
  Receive Date: 20120619
  Receipt Date: 20120612
  Transmission Date: 20120825
  Serious: No
  Sender: FDA-Public Use
  Company Number: US-B.I. PHARMACEUTICALS,INC./RIDGEFIELD-2011-BP-27360BP

PATIENT
  Sex: Female

DRUGS (2)
  1. OXYGEN [Concomitant]
  2. SPIRIVA [Suspect]

REACTIONS (3)
  - DYSPHONIA [None]
  - DRUG INEFFECTIVE [None]
  - APHONIA [None]
